FAERS Safety Report 4358564-2 (Version None)
Quarter: 2004Q2

REPORT INFORMATION
  Report Type: 
  Country: None (occurrence: None)
  Receive Date: 20040512
  Receipt Date: 20040430
  Transmission Date: 20050107
  Serious: Yes (Hospitalization)
  Sender: FDA-Public Use
  Company Number: 04P-056-0251304-00

PATIENT
  Age: 13 Year
  Sex: Female

DRUGS (2)
  1. BIAXIN [Suspect]
     Indication: PHARYNGITIS
     Dosage: PER ORAL
     Route: 048
     Dates: end: 20031008
  2. NIFLUMIC ACID [Suspect]
     Indication: PHARYNGITIS
     Dosage: 250 MG, PER ORAL
     Route: 048
     Dates: end: 20031208

REACTIONS (5)
  - NEPHRITIS INTERSTITIAL [None]
  - POLYDIPSIA [None]
  - POLYURIA [None]
  - ULTRASOUND KIDNEY ABNORMAL [None]
  - URINARY TRACT DISORDER [None]
